FAERS Safety Report 10515347 (Version 1)
Quarter: 2014Q4

REPORT INFORMATION
  Report Type: Spontaneous
  Country: IT (occurrence: IT)
  Receive Date: 20141014
  Receipt Date: 20141014
  Transmission Date: 20150528
  Serious: Yes (Life-Threatening, Hospitalization)
  Sender: FDA-Public Use
  Company Number: IT-ACCORD-026345

PATIENT
  Age: 73 Year
  Sex: Male

DRUGS (3)
  1. MYCOPHENOLIC ACID. [Suspect]
     Active Substance: MYCOPHENOLIC ACID
     Indication: RENAL TRANSPLANT
     Dosage: PREVIOUSLY TOOK FROM 1999 TO 2000 AND 2006 TO 2007.
     Dates: start: 2012
  2. TACROLIMUS. [Suspect]
     Active Substance: TACROLIMUS
     Indication: RENAL TRANSPLANT
     Dates: start: 2002
  3. PREDNISONE. [Suspect]
     Active Substance: PREDNISONE
     Indication: RENAL TRANSPLANT
     Dosage: PRIVIOUSLY TOOK IN 1997, 1998 AND 2001.
     Dates: start: 2003

REACTIONS (11)
  - Cytomegalovirus infection [None]
  - Leishmaniasis [Unknown]
  - Deep vein thrombosis [None]
  - Haemorrhagic stroke [None]
  - Diarrhoea [None]
  - Hyponatraemia [None]
  - Spinal fracture [None]
  - Skin cancer [None]
  - Haematoma [None]
  - Pneumonia bacterial [None]
  - Pathological fracture [None]
